FAERS Safety Report 7327078-X (Version None)
Quarter: 2011Q1

REPORT INFORMATION
  Report Type: 
  Country: None (occurrence: None)
  Receive Date: 20110223
  Receipt Date: 20110209
  Transmission Date: 20110831
  Serious: Yes (Hospitalization)
  Sender: FDA-Public Use
  Company Number: GER/USA/11/0017376

PATIENT
  Age: 23 Year
  Sex: Male

DRUGS (1)
  1. IBUPROFEN [Suspect]
     Indication: PYREXIA
     Dosage: 1 IN 1 D

REACTIONS (10)
  - HYPOALBUMINAEMIA [None]
  - GASTRIC ULCER [None]
  - ILEAL ULCER [None]
  - WEIGHT DECREASED [None]
  - NIGHT SWEATS [None]
  - CROHN'S DISEASE [None]
  - IRON DEFICIENCY ANAEMIA [None]
  - RECTAL ULCER [None]
  - HYPERHIDROSIS [None]
  - GASTRITIS [None]
